FAERS Safety Report 23952732 (Version 1)
Quarter: 2024Q2

REPORT INFORMATION
  Report Type: Spontaneous
  Country: CN (occurrence: CN)
  Receive Date: 20240607
  Receipt Date: 20240607
  Transmission Date: 20240716
  Serious: Yes (Other)
  Sender: FDA-Public Use
  Company Number: CN-PFIZER INC-PV202400074775

PATIENT
  Age: 8 Year
  Sex: Female
  Weight: 22.5 kg

DRUGS (2)
  1. SOLU-MEDROL [Suspect]
     Active Substance: METHYLPREDNISOLONE SODIUM SUCCINATE
     Indication: Encephalitis viral
     Dosage: 40 MG, 1X/DAY
     Route: 041
     Dates: start: 20240517, end: 20240524
  2. GS [Concomitant]
     Dosage: 100 ML, 1X/DAY
     Route: 041
     Dates: start: 20240517, end: 20240524

REACTIONS (2)
  - White blood cell count increased [Recovering/Resolving]
  - Off label use [Unknown]

NARRATIVE: CASE EVENT DATE: 20240517
